FAERS Safety Report 5843032-9 (Version None)
Quarter: 2008Q3

REPORT INFORMATION
  Report Type: 
  Country: None (occurrence: None)
  Receive Date: 20080808
  Receipt Date: 20080730
  Transmission Date: 20090109
  Serious: Yes (Other)
  Sender: FDA-Public Use
  Company Number: 2008-02581

PATIENT
  Age: 63 Year
  Sex: Female
  Weight: 55 kg

DRUGS (2)
  1. VELCADE [Suspect]
     Indication: MULTIPLE MYELOMA
     Dosage: 2 MG UNK INTRAVENOUS
     Route: 042
     Dates: start: 20080620, end: 20080630
  2. DEXAMETHASONE TAB [Concomitant]

REACTIONS (3)
  - ERYTHEMA MULTIFORME [None]
  - SKIN HAEMORRHAGE [None]
  - STEVENS-JOHNSON SYNDROME [None]
